FAERS Safety Report 6192007-1 (Version None)
Quarter: 2009Q2

REPORT INFORMATION
  Report Type: 
  Country: None (occurrence: None)
  Receive Date: 20090515
  Receipt Date: 20090506
  Transmission Date: 20091009
  Serious: Yes (Death)
  Sender: FDA-Public Use
  Company Number: B0572901A

PATIENT
  Sex: Male
  Weight: 80 kg

DRUGS (7)
  1. ARIXTRA [Suspect]
     Indication: DRUG USE FOR UNKNOWN INDICATION
     Dosage: 2.5MG PER DAY
     Route: 058
     Dates: start: 20090316, end: 20090317
  2. SINTROM [Concomitant]
     Dosage: 2MG PER DAY
     Route: 065
     Dates: end: 20090316
  3. LASIX [Concomitant]
     Dosage: 80MG PER DAY
     Route: 048
  4. PERINDOPRIL ERBUMINE [Concomitant]
     Dosage: 4MG PER DAY
     Route: 048
  5. CARDENSIEL [Concomitant]
     Dosage: 1.25MG PER DAY
     Route: 048
  6. PRAVASTATIN [Concomitant]
     Dosage: 20MG PER DAY
     Route: 048
  7. NEXIUM [Concomitant]
     Dosage: 20MG PER DAY
     Route: 048

REACTIONS (5)
  - ANAEMIA [None]
  - CARDIAC ARREST [None]
  - HAEMATOMA [None]
  - HAEMORRHAGE [None]
  - OFF LABEL USE [None]
